FAERS Safety Report 17208924 (Version 1)
Quarter: 2019Q4

REPORT INFORMATION
  Report Type: Spontaneous
  Country: JP (occurrence: JP)
  Receive Date: 20191227
  Receipt Date: 20191227
  Transmission Date: 20200122
  Serious: Yes (Hospitalization)
  Sender: FDA-Public Use
  Company Number: JP-DSJP-DSJ-2018-138624

PATIENT

DRUGS (21)
  1. LANTUS [Concomitant]
     Active Substance: INSULIN GLARGINE
     Dosage: 20IU/DAY
     Route: 065
  2. FUROSEMIDE. [Concomitant]
     Active Substance: FUROSEMIDE
     Dosage: 20 MG, QD
     Route: 065
  3. LIXIANA OD TABLETS [Suspect]
     Active Substance: EDOXABAN TOSYLATE
     Indication: ATRIAL FIBRILLATION
     Dosage: 60MG/DAY
     Route: 048
     Dates: end: 20180702
  4. SEIBULE [Concomitant]
     Active Substance: MIGLITOL
     Dosage: 50 MG, TID
     Route: 065
  5. MICOMBI COMBINATION [Concomitant]
     Active Substance: HYDROCHLOROTHIAZIDE\TELMISARTAN
     Dosage: 1 DF, QD
     Route: 065
  6. METFORMIN [Concomitant]
     Active Substance: METFORMIN HYDROCHLORIDE
     Dosage: 500 MG, TID
     Route: 065
  7. LIPITOR [Concomitant]
     Active Substance: ATORVASTATIN CALCIUM
     Dosage: 10 MG, QD
     Route: 065
  8. LANTUS [Concomitant]
     Active Substance: INSULIN GLARGINE
     Dosage: 25IU/DAY(AT THE TIME OF BLOOD GLUCOSE LEVEL 180 OVER)
     Route: 065
  9. FELBINAC [Concomitant]
     Active Substance: FELBINAC
     Dosage: UNK
     Route: 065
  10. RELVAR [Concomitant]
     Active Substance: FLUTICASONE FUROATE\VILANTEROL TRIFENATATE
     Dosage: UNK UNK, QD
  11. EPALRESTAT [Concomitant]
     Active Substance: EPALRESTAT
     Dosage: 1 DF, TID
     Route: 065
  12. FEBURIC [Concomitant]
     Active Substance: FEBUXOSTAT
     Dosage: 10 MG, QD
     Route: 065
  13. JANUVIA [Concomitant]
     Active Substance: SITAGLIPTIN PHOSPHATE
     Dosage: 50 MG, QD
     Route: 065
  14. INSULIN GLARGINE [Concomitant]
     Active Substance: INSULIN GLARGINE
     Dosage: UNK, QD
     Route: 065
  15. LIXIANA OD TABLETS [Suspect]
     Active Substance: EDOXABAN TOSYLATE
     Dosage: 60MG/DAY
     Route: 048
  16. CALBLOCK [Suspect]
     Active Substance: AZELNIDIPINE
     Indication: PRODUCT USED FOR UNKNOWN INDICATION
     Dosage: 16 MG, QD
     Route: 065
  17. MAGNESIUM OXIDE. [Concomitant]
     Active Substance: MAGNESIUM OXIDE
     Dosage: 660 MG, QD
     Route: 065
  18. LANSOPRAZOLE. [Concomitant]
     Active Substance: LANSOPRAZOLE
     Dosage: 15 MG, QD
     Route: 065
  19. AMBROXOL HYDROCHLORIDE [Concomitant]
     Active Substance: AMBROXOL HYDROCHLORIDE
     Dosage: 45 MG, QD
     Route: 065
  20. FERROUS CITRATE NA [Concomitant]
     Active Substance: SODIUM FERROUS CITRATE
     Dosage: 50 MG, QD
     Route: 065
  21. CARBOCISTEINE [Concomitant]
     Active Substance: CARBOCYSTEINE
     Dosage: 500 MG, TID
     Route: 065

REACTIONS (3)
  - Haematochezia [Recovering/Resolving]
  - Intestinal haematoma [Recovering/Resolving]
  - Bacteraemia [Unknown]

NARRATIVE: CASE EVENT DATE: 20180703
